FAERS Safety Report 5506002-6 (Version None)
Quarter: 2007Q4

REPORT INFORMATION
  Report Type: 
  Country: None (occurrence: None)
  Receive Date: 20071102
  Receipt Date: 20071102
  Transmission Date: 20080405
  Serious: Yes (Disabling)
  Sender: FDA-Public Use
  Company Number: None

PATIENT
  Sex: Male
  Weight: 141.9759 kg

DRUGS (8)
  1. AVANDIA [Suspect]
     Indication: TYPE 2 DIABETES MELLITUS
     Dosage: 8MG PO QD
     Route: 048
     Dates: start: 20060518, end: 20070725
  2. NORVASC [Concomitant]
  3. GLUCOTROL XL [Concomitant]
  4. LYRICA [Concomitant]
  5. LORTAB [Concomitant]
  6. OMEPRAZOLE [Concomitant]
  7. CELEBREX [Concomitant]
  8. LAMISIL [Concomitant]

REACTIONS (1)
  - CARDIAC FAILURE [None]
